FAERS Safety Report 12119549 (Version 1)
Quarter: 2016Q1

REPORT INFORMATION
  Report Type: Spontaneous
  Country: US (occurrence: None)
  Receive Date: 20160225
  Receipt Date: 20160225
  Transmission Date: 20160526
  Serious: Yes (Hospitalization)
  Sender: FDA-Public Use
  Company Number: None

PATIENT
  Age: 69 Year
  Sex: Female
  Weight: 44.27 kg

DRUGS (1)
  1. CISPLATIN. [Suspect]
     Active Substance: CISPLATIN
     Dates: end: 20120206

REACTIONS (4)
  - Dehydration [None]
  - Culture urine positive [None]
  - Staphylococcal infection [None]
  - Diarrhoea [None]

NARRATIVE: CASE EVENT DATE: 20120222
